FAERS Safety Report 9992621 (Version 2)
Quarter: 2014Q1

REPORT INFORMATION
  Report Type: Spontaneous
  Country: US (occurrence: US)
  Receive Date: 20140310
  Receipt Date: 20140326
  Transmission Date: 20141002
  Serious: No
  Sender: FDA-Public Use
  Company Number: US-PFIZER INC-2014067473

PATIENT
  Age: 40 Year
  Sex: Female
  Weight: 72.56 kg

DRUGS (5)
  1. GABAPENTIN [Suspect]
     Indication: BACK PAIN
     Dosage: 2 DF, 3X/DAY
     Route: 048
     Dates: start: 201104
  2. GABAPENTIN [Suspect]
     Indication: PAIN IN EXTREMITY
  3. GABAPENTIN [Suspect]
     Indication: NERVE INJURY
  4. METFORMIN [Concomitant]
     Indication: DIABETES MELLITUS
     Dosage: UNK, 2X/DAY
     Dates: start: 2010
  5. TRAMADOL [Concomitant]
     Indication: BACK PAIN
     Dosage: 50 MG, 3X/DAY

REACTIONS (2)
  - Drug ineffective [Unknown]
  - Pain [Unknown]
